FAERS Safety Report 19012566 (Version 2)
Quarter: 2021Q2

REPORT INFORMATION
  Report Type: Spontaneous
  Country: DE (occurrence: DE)
  Receive Date: 20210315
  Receipt Date: 20210507
  Transmission Date: 20210717
  Serious: Yes (Other)
  Sender: FDA-Public Use
  Company Number: NVSC2021DE054027

PATIENT
  Sex: Male

DRUGS (3)
  1. SANDIMMUN OPTORAL [Suspect]
     Active Substance: CYCLOSPORINE
     Dosage: 50 MG
     Route: 065
     Dates: start: 202101
  2. SANDIMMUN OPTORAL [Suspect]
     Active Substance: CYCLOSPORINE
     Dosage: 75 (50MG+25MG) MG, QD
     Route: 065
     Dates: start: 20210226
  3. SANDIMMUN OPTORAL [Suspect]
     Active Substance: CYCLOSPORINE
     Indication: GLOMERULONEPHRITIS MINIMAL LESION
     Dosage: 75 (50MG+25MG) MG, QD (SINCE AGE OF 8 YEARS)
     Route: 065

REACTIONS (7)
  - Infection [Unknown]
  - Immunosuppression [Unknown]
  - Full blood count decreased [Unknown]
  - Glomerulonephritis minimal lesion [Not Recovered/Not Resolved]
  - Disease recurrence [Unknown]
  - Fungaemia [Unknown]
  - Condition aggravated [Not Recovered/Not Resolved]
